FAERS Safety Report 5158104-4 (Version None)
Quarter: 2006Q4

REPORT INFORMATION
  Report Type: 
  Country: None (occurrence: None)
  Receive Date: 20061127
  Receipt Date: 20061122
  Transmission Date: 20070319
  Serious: Yes (Other)
  Sender: FDA-Public Use
  Company Number: GB-MERCK-0611GBR00133

PATIENT
  Age: 60 Year
  Sex: Female

DRUGS (2)
  1. ZETIA [Suspect]
     Route: 048
  2. PREDNISOLONE [Suspect]
     Route: 065

REACTIONS (1)
  - SYSTEMIC LUPUS ERYTHEMATOSUS [None]
